FAERS Safety Report 9412758 (Version 3)
Quarter: 2013Q3

REPORT INFORMATION
  Report Type: Report from Study
  Country: TW (occurrence: TW)
  Receive Date: 20130722
  Receipt Date: 20130918
  Transmission Date: 20140515
  Serious: Yes (Death, Hospitalization, Other)
  Sender: FDA-Public Use
  Company Number: PHHO2013TW009301

PATIENT
  Age: 35 Year
  Sex: Male

DRUGS (24)
  1. ALISKIREN [Suspect]
     Indication: CARDIAC FAILURE
     Dosage: UNK
     Route: 048
     Dates: start: 20100419
  2. ENALAPRIL [Suspect]
     Indication: CARDIAC FAILURE
     Dosage: 20 MG, UNK
     Route: 048
     Dates: start: 20100406
  3. PROPYLTHIOURACIL [Suspect]
  4. STRONGER NEO-MINOPHAGEN C [Concomitant]
     Dosage: 1 AMP
     Route: 042
     Dates: start: 20130715
  5. SUCCINYLATED GELATIN [Concomitant]
     Dosage: 500 ML, UNK
     Route: 042
     Dates: start: 20130722, end: 20130723
  6. SUCRALFATE [Concomitant]
     Dosage: 1 PK
     Route: 048
     Dates: start: 20130715, end: 20130716
  7. TRANSAMINE [Concomitant]
     Dosage: 1 AMP
     Route: 042
     Dates: start: 20130715, end: 20130716
  8. URSODEOXYCHOLIC ACID [Concomitant]
     Dosage: 3
     Route: 048
     Dates: start: 20130715
  9. ESOMEPRAZOLE [Concomitant]
     Dosage: 1 AMP
     Route: 042
     Dates: start: 20130715
  10. PHYTONADIONE [Concomitant]
     Dosage: 10 MG, QD
     Route: 042
     Dates: start: 20130715
  11. HYDROCORTISONE [Concomitant]
     Dosage: 100 MG, 0.5 VIAL
     Route: 042
     Dates: start: 20130723
  12. DIPHENHYDRAMINE [Concomitant]
     Dosage: 30 MG, 1 AMP, STAT
     Route: 042
  13. FUROSEMIDE [Concomitant]
     Dosage: 1 AMP
     Route: 042
     Dates: start: 20130715, end: 20130716
  14. FUROSEMIDE [Concomitant]
     Dosage: 1 AMP
     Route: 042
     Dates: start: 20130716, end: 20130719
  15. FUROSEMIDE [Concomitant]
     Dosage: 1 AMP
     Route: 042
     Dates: start: 20130719, end: 20130723
  16. SILVER SULFADIAZINE [Concomitant]
     Dosage: UNK, PRN
     Dates: start: 20130715
  17. ADRENALIN [Concomitant]
     Dosage: 1 AMP, STAT
     Route: 042
     Dates: start: 20130723
  18. COLIMYCIN [Concomitant]
     Dosage: 1 VIAL
     Route: 042
     Dates: start: 20130723
  19. ANIDULAFUNGIN [Concomitant]
     Dosage: 2 VIALS
     Route: 042
     Dates: start: 20130723
  20. ATROPINE [Concomitant]
     Dosage: 1 AMP, STAT
     Route: 042
     Dates: start: 20130724
  21. ALBUMIN [Concomitant]
     Dosage: 1 BT, STAT
     Route: 042
     Dates: start: 20130722
  22. NYSTATIN [Concomitant]
     Dosage: UNK
     Dates: start: 20130715, end: 20130722
  23. ACYCLOVIR [Concomitant]
     Dosage: 2 DF, UNK
     Dates: start: 20130722
  24. XYLOCAIN                                /GFR/ [Concomitant]
     Dosage: 20AMP
     Route: 042
     Dates: start: 20130722

REACTIONS (4)
  - Cardiogenic shock [Fatal]
  - Acute hepatic failure [Recovering/Resolving]
  - Death [Fatal]
  - Thyrotoxic crisis [Fatal]
